FAERS Safety Report 16468566 (Version 2)
Quarter: 2019Q3

REPORT INFORMATION
  Report Type: Report from Study
  Country: IT (occurrence: IT)
  Receive Date: 20190624
  Receipt Date: 20190701
  Transmission Date: 20191004
  Serious: Yes (Death)
  Sender: FDA-Public Use
  Company Number: IT-ACCORD-134282

PATIENT
  Age: 68 Year
  Sex: Male
  Weight: 50 kg

DRUGS (1)
  1. FLUOROURACIL. [Suspect]
     Active Substance: FLUOROURACIL
     Indication: GASTRIC CANCER

REACTIONS (1)
  - Acute myocardial infarction [Fatal]
